FAERS Safety Report 7106236-3 (Version None)
Quarter: 2010Q4

REPORT INFORMATION
  Report Type: 
  Country: None (occurrence: None)
  Receive Date: 20101116
  Receipt Date: 20101103
  Transmission Date: 20110411
  Serious: Yes (Other)
  Sender: FDA-Public Use
  Company Number: US-ELI_LILLY_AND_COMPANY-US201011001797

PATIENT
  Age: 75 Year
  Sex: Male

DRUGS (6)
  1. CYMBALTA [Suspect]
     Dosage: 120 MG, DAILY (1/D)
  2. CYMBALTA [Suspect]
     Dosage: 60 MG, DAILY (1/D)
  3. WELLBUTRIN [Concomitant]
     Dosage: 300 D/F, UNK
  4. VALIUM [Concomitant]
     Dosage: 5 MG, 3/D
  5. RAZADYNE [Concomitant]
     Dosage: 8 MG, 2/D
  6. NAMENDA [Concomitant]
     Dosage: 10 MG, DAILY (1/D)

REACTIONS (3)
  - DIZZINESS POSTURAL [None]
  - FALL [None]
  - HYPERTENSION [None]
